FAERS Safety Report 9362744 (Version 1)
Quarter: 2013Q2

REPORT INFORMATION
  Report Type: Spontaneous
  Country: FR (occurrence: FR)
  Receive Date: 20130623
  Receipt Date: 20130623
  Transmission Date: 20140414
  Serious: Yes (Disabling)
  Sender: FDA-Public Use
  Company Number: FR-MERCK-1306FRA007038

PATIENT
  Age: 80 Year
  Sex: Male

DRUGS (1)
  1. TEMODAL [Suspect]
     Dosage: UNK
     Route: 048
     Dates: start: 201207

REACTIONS (1)
  - Parkinson^s disease [Unknown]
